FAERS Safety Report 14584111 (Version 7)
Quarter: 2018Q2

REPORT INFORMATION
  Report Type: Report from Study
  Country: AU (occurrence: AU)
  Receive Date: 20180228
  Receipt Date: 20180508
  Transmission Date: 20180711
  Serious: Yes (Hospitalization)
  Sender: FDA-Public Use
  Company Number: AU-B.I. PHARMACEUTICALS,INC./RIDGEFIELD-2018-BI-002341

PATIENT
  Age: 78 Year
  Sex: Male
  Weight: 74 kg

DRUGS (20)
  1. METOCLOPRAMIDE. [Suspect]
     Active Substance: METOCLOPRAMIDE
     Indication: PROPHYLAXIS OF NAUSEA AND VOMITING
  2. BIBF 1120 [Suspect]
     Active Substance: NINTEDANIB
     Indication: PLEURAL MESOTHELIOMA MALIGNANT
     Dosage: 100 MG
     Route: 048
     Dates: start: 20171212
  3. CISPLATIN. [Suspect]
     Active Substance: CISPLATIN
     Dosage: STRENGTH: 56.25MG/M^2
     Route: 042
     Dates: end: 20180404
  4. PREDNISOLONE. [Concomitant]
     Active Substance: PREDNISOLONE
     Indication: DYSPNOEA
     Route: 048
     Dates: start: 20180404
  5. FOLATE [Concomitant]
     Active Substance: FOLATE SODIUM
     Indication: PREMEDICATION
     Route: 048
     Dates: start: 20171204
  6. ATIVAN [Concomitant]
     Active Substance: LORAZEPAM
     Indication: SLEEP DISORDER THERAPY
     Route: 048
     Dates: start: 20171211
  7. ORDINE [Concomitant]
     Active Substance: MORPHINE
     Indication: DYSPNOEA
     Dosage: DAILY DOSE: 2MG/ML (1.5ML)
     Route: 048
     Dates: start: 20180404
  8. CISPLATIN. [Suspect]
     Active Substance: CISPLATIN
     Indication: PLEURAL MESOTHELIOMA MALIGNANT
     Dosage: STRENGTH: 75MG/M^2
     Route: 042
     Dates: start: 20171211, end: 20180103
  9. DEXAMETHASONE. [Concomitant]
     Active Substance: DEXAMETHASONE
     Indication: PREMEDICATION
     Route: 048
     Dates: start: 20171210
  10. ALIMTA [Suspect]
     Active Substance: PEMETREXED DISODIUM
     Dosage: STRENGTH: 375MG/M^2
     Route: 042
     Dates: end: 20180404
  11. AKYNZEO [Suspect]
     Active Substance: NETUPITANT\PALONOSETRON HYDROCHLORIDE
     Indication: PREMEDICATION
     Dosage: UNIT DOSE AND DAILY DOSE: 300/0.5MG
     Route: 048
     Dates: start: 20171211
  12. METOCLOPRAMIDE. [Suspect]
     Active Substance: METOCLOPRAMIDE
     Indication: PREMEDICATION
     Dosage: DAILY DOSE: 10MG THRICE DAILY (TID) AS NEEDED (PRN)
     Route: 048
     Dates: start: 20171213
  13. COVERSYL [Concomitant]
     Active Substance: PERINDOPRIL
     Indication: HYPERTENSION
     Route: 048
     Dates: start: 20180312
  14. VITAMIN B12 [Concomitant]
     Active Substance: CYANOCOBALAMIN
     Indication: PREMEDICATION
     Route: 058
     Dates: start: 20171204
  15. PANADOL [Concomitant]
     Active Substance: ACETAMINOPHEN
     Indication: BACK PAIN
  16. ALIMTA [Suspect]
     Active Substance: PEMETREXED DISODIUM
     Indication: PLEURAL MESOTHELIOMA MALIGNANT
     Dosage: STRENGTH: 500MG/M^2
     Route: 042
     Dates: start: 20171211, end: 20180103
  17. ONDANSETRON [Suspect]
     Active Substance: ONDANSETRON
     Indication: PROPHYLAXIS OF NAUSEA AND VOMITING
  18. PANADOL [Concomitant]
     Active Substance: ACETAMINOPHEN
     Indication: ABDOMINAL PAIN
     Route: 048
     Dates: start: 20180331
  19. ONDANSETRON [Suspect]
     Active Substance: ONDANSETRON
     Indication: PREMEDICATION
     Dosage: DAILY DOSE: 4MG TWICE DAILY (BD) AS NEEDED (PRN)
     Route: 048
     Dates: start: 20171213
  20. AKYNZEO [Suspect]
     Active Substance: NETUPITANT\PALONOSETRON HYDROCHLORIDE
     Indication: PROPHYLAXIS OF NAUSEA AND VOMITING

REACTIONS (2)
  - Pericarditis [Recovered/Resolved]
  - Constipation [Recovered/Resolved]

NARRATIVE: CASE EVENT DATE: 20180110
